FAERS Safety Report 14137820 (Version 6)
Quarter: 2018Q3

REPORT INFORMATION
  Report Type: Report from Study
  Country: DE (occurrence: DE)
  Receive Date: 20171027
  Receipt Date: 20180918
  Transmission Date: 20181010
  Serious: Yes (Hospitalization, Other)
  Sender: FDA-Public Use
  Company Number: DE-AMGEN-DEUCT2017159830

PATIENT
  Age: 63 Year
  Sex: Male
  Weight: 78.4 kg

DRUGS (7)
  1. 5?FU [Suspect]
     Active Substance: FLUOROURACIL
     Indication: COLORECTAL CANCER METASTATIC
     Dosage: 2400 MG/M2, UNK
     Route: 042
     Dates: start: 20170731
  2. PANITUMUMAB [Suspect]
     Active Substance: PANITUMUMAB
     Indication: COLORECTAL CANCER METASTATIC
     Dosage: 462 MG, UNK
     Route: 042
     Dates: start: 20170731
  3. FOLINIC ACID [Suspect]
     Active Substance: LEUCOVORIN
     Indication: COLORECTAL CANCER METASTATIC
     Dosage: 400 MG/M2, UNK
     Route: 042
     Dates: start: 20170731
  4. IBUPROFEN. [Concomitant]
     Active Substance: IBUPROFEN
     Indication: BACK PAIN
     Dosage: 400 MG, TID
     Route: 048
     Dates: start: 20170815, end: 20171013
  5. OXALIPLATIN. [Suspect]
     Active Substance: OXALIPLATIN
     Indication: COLORECTAL CANCER METASTATIC
     Dosage: 85 MG/M2, UNK
     Route: 042
     Dates: start: 20170731
  6. PANITUMUMAB [Suspect]
     Active Substance: PANITUMUMAB
     Dosage: 462 MG, UNK
     Route: 042
     Dates: start: 20171016
  7. PANITUMUMAB [Suspect]
     Active Substance: PANITUMUMAB
     Dosage: 342 MG, UNK
     Route: 042
     Dates: end: 20180821

REACTIONS (4)
  - Lumbar vertebral fracture [Not Recovered/Not Resolved]
  - Rib fracture [Not Recovered/Not Resolved]
  - Diarrhoea [Recovered/Resolved]
  - Acute kidney injury [Recovered/Resolved]

NARRATIVE: CASE EVENT DATE: 20171013
